FAERS Safety Report 24383214 (Version 5)
Quarter: 2025Q4

REPORT INFORMATION
  Report Type: Spontaneous
  Country: US (occurrence: US)
  Receive Date: 20241001
  Receipt Date: 20251120
  Transmission Date: 20260119
  Serious: No
  Sender: CATALYST PHARMA
  Company Number: US-CATALYST PHARMACEUTICALS-US-CATA-24-00563

PATIENT
  Sex: Male
  Weight: 58.957 kg

DRUGS (10)
  1. AGAMREE [Suspect]
     Active Substance: VAMOROLONE
     Indication: Duchenne muscular dystrophy
     Dosage: 5.2 ML ONCE DAILY
     Route: 048
     Dates: start: 20240328, end: 202409
  2. AGAMREE [Suspect]
     Active Substance: VAMOROLONE
     Dosage: 6.4 ML ONCE A DAY
     Route: 048
     Dates: start: 20240926
  3. AMOXICILLIN [Suspect]
     Active Substance: AMOXICILLIN
     Indication: Gingival swelling
     Dosage: 500 MG TWICE DAILY
     Route: 065
     Dates: start: 202411, end: 202411
  4. EXONDYS 51 [Concomitant]
     Active Substance: ETEPLIRSEN
     Indication: Duchenne muscular dystrophy
     Dosage: 100 MG WEEKLY
     Route: 042
  5. DUVYZAT [Concomitant]
     Active Substance: GIVINOSTAT
     Indication: Duchenne muscular dystrophy
     Dosage: 5 ML TWICE DAILY
     Route: 048
  6. LISINOPRIL [Concomitant]
     Active Substance: LISINOPRIL
     Indication: Cardiovascular event prophylaxis
     Dosage: 2.5 MG DAILY
     Route: 048
  7. ALENDRONATE SODIUM [Concomitant]
     Active Substance: ALENDRONATE SODIUM
     Indication: Osteoporosis
     Dosage: 35 MG WEEKLY
     Route: 048
  8. VITAMINS [Concomitant]
     Active Substance: VITAMINS
     Indication: Hypovitaminosis
     Dosage: 1 TABLET DAILY
     Route: 048
  9. VITAMIN D3 SUPER STRENGTH [Concomitant]
     Indication: Hypovitaminosis
     Dosage: 2000 UNITS DAILY
     Route: 048
  10. VITAMIN D3 SUPER STRENGTH [Concomitant]
     Dosage: 200 UNITS DAILY
     Route: 065

REACTIONS (9)
  - Enuresis [Not Recovered/Not Resolved]
  - Gingival swelling [Not Recovered/Not Resolved]
  - Hypersensitivity [Unknown]
  - Hypoaesthesia [Unknown]
  - Pain [Not Recovered/Not Resolved]
  - Pyrexia [Unknown]
  - Weight increased [Not Recovered/Not Resolved]
  - Insomnia [Not Recovered/Not Resolved]
  - Oral infection [Unknown]

NARRATIVE: CASE EVENT DATE: 20240101
